FAERS Safety Report 5134934-X (Version None)
Quarter: 2006Q4

REPORT INFORMATION
  Report Type: 
  Country: None (occurrence: None)
  Receive Date: 20061025
  Receipt Date: 20061013
  Transmission Date: 20070319
  Serious: Yes (Other)
  Sender: FDA-Public Use
  Company Number: PHFR2006GB03091

PATIENT
  Age: 20 Year
  Sex: Female
  Weight: 50 kg

DRUGS (4)
  1. MYCOPHENOLIC ACID [Suspect]
     Indication: TRANSPLANT
  2. ETONOGESTREL [Suspect]
     Indication: CONTRACEPTION
     Route: 065
  3. RAPAMUNE [Suspect]
     Indication: TRANSPLANT
     Dosage: 1MG
     Route: 065
     Dates: start: 20051201, end: 20060501
  4. RAPAMUNE [Suspect]
     Route: 065
     Dates: start: 20060501

REACTIONS (3)
  - BLOOD CREATININE INCREASED [None]
  - DRUG INTERACTION [None]
  - RENAL IMPAIRMENT [None]
